FAERS Safety Report 11119710 (Version 2)
Quarter: 2015Q2

REPORT INFORMATION
  Report Type: Report from Study
  Country: ES (occurrence: ES)
  Receive Date: 20150518
  Receipt Date: 20150603
  Transmission Date: 20150821
  Serious: Yes (Death, Hospitalization)
  Sender: FDA-Public Use
  Company Number: ES-BRISTOL-MYERS SQUIBB COMPANY-BMS-2015-029461

PATIENT
  Age: 60 Year
  Sex: Female
  Weight: 87.5 kg

DRUGS (2)
  1. NIVOLUMAB [Suspect]
     Active Substance: NIVOLUMAB
     Indication: NEOPLASM
     Dosage: 3 MG/KG, UNK
     Route: 042
     Dates: start: 20150420, end: 20150420
  2. IPILIMUMAB [Suspect]
     Active Substance: IPILIMUMAB
     Indication: NEOPLASM
     Dosage: 1 MG/KG, UNK
     Route: 042
     Dates: start: 20150420, end: 20150420

REACTIONS (2)
  - Malignant neoplasm progression [Fatal]
  - Systemic candida [Fatal]

NARRATIVE: CASE EVENT DATE: 20150430
